FAERS Safety Report 14889961 (Version 1)
Quarter: 2018Q2

REPORT INFORMATION
  Report Type: Spontaneous
  Country: US (occurrence: US)
  Receive Date: 20180514
  Receipt Date: 20180514
  Transmission Date: 20180711
  Serious: No
  Sender: FDA-Public Use
  Company Number: US-ASTRAZENECA-2018SE62733

PATIENT
  Age: 63 Year
  Sex: Female
  Weight: 68 kg

DRUGS (1)
  1. SYMBICORT [Suspect]
     Active Substance: BUDESONIDE\FORMOTEROL FUMARATE DIHYDRATE
     Indication: ASTHMA
     Dosage: 160/4.5MCG 2 PUFFS TWO TIMES A DAY
     Route: 055
     Dates: start: 20180507

REACTIONS (6)
  - Throat irritation [Unknown]
  - Vomiting [Unknown]
  - Retching [Unknown]
  - Cough [Unknown]
  - Dysgeusia [Unknown]
  - Malaise [Unknown]

NARRATIVE: CASE EVENT DATE: 20180509
